FAERS Safety Report 9801963 (Version 2)
Quarter: 2014Q1

REPORT INFORMATION
  Report Type: Spontaneous
  Country: MY (occurrence: MY)
  Receive Date: 20140107
  Receipt Date: 20140130
  Transmission Date: 20141002
  Serious: Yes (Other)
  Sender: FDA-Public Use
  Company Number: PHHY2013MY154237

PATIENT
  Age: 56 Year
  Sex: Female

DRUGS (1)
  1. ACETYLSALICYLIC ACID [Suspect]
     Dosage: 75 MG, DAILY

REACTIONS (6)
  - Ureteric obstruction [Unknown]
  - Hydronephrosis [Unknown]
  - Haemothorax [Unknown]
  - Retroperitoneal haemorrhage [Recovered/Resolved]
  - Abdominal pain [Recovered/Resolved]
  - Hypotension [Unknown]
